FAERS Safety Report 10189533 (Version 1)
Quarter: 2014Q2

REPORT INFORMATION
  Report Type: Spontaneous
  Country: IT (occurrence: IT)
  Receive Date: 20140522
  Receipt Date: 20140522
  Transmission Date: 20141212
  Serious: Yes (Hospitalization)
  Sender: FDA-Public Use
  Company Number: IT-BAYER-2014-072393

PATIENT
  Age: 82 Year
  Sex: Female

DRUGS (6)
  1. CARDIOASPIRIN [Suspect]
     Indication: THROMBOSIS PROPHYLAXIS
     Dosage: DAILY DOSE 100 MG
     Route: 048
     Dates: start: 20140101, end: 20140429
  2. PAROXETINE [Concomitant]
     Route: 048
  3. YASNAL [Concomitant]
     Route: 048
  4. ARICEPT [Concomitant]
     Dosage: UNK
     Route: 048
  5. TRITTICO [Concomitant]
     Dosage: UNK
     Route: 048
  6. TRIATEC [Concomitant]
     Dosage: UNK
     Route: 048

REACTIONS (3)
  - Subdural haematoma [Unknown]
  - Brain compression [Unknown]
  - Gait disturbance [Unknown]
